FAERS Safety Report 4301502-9 (Version None)
Quarter: 2004Q1

REPORT INFORMATION
  Report Type: 
  Country: None (occurrence: None)
  Receive Date: 20040218
  Receipt Date: 20040204
  Transmission Date: 20041129
  Serious: Yes (Other)
  Sender: FDA-Public Use
  Company Number: US-JNJFOC-20031104673

PATIENT
  Age: 46 Year
  Sex: Male
  Weight: 86.1834 kg

DRUGS (5)
  1. RISPERDAL [Suspect]
     Indication: DRUG USE FOR UNKNOWN INDICATION
     Dosage: SEE IMAGE
     Route: 048
     Dates: start: 20021201, end: 20030201
  2. RISPERDAL [Suspect]
     Indication: DRUG USE FOR UNKNOWN INDICATION
     Dosage: SEE IMAGE
     Route: 048
     Dates: start: 20030120, end: 20030201
  3. HALDOL [Suspect]
     Indication: SCHIZOPHRENIA
     Dates: start: 20030101, end: 20030201
  4. COGENTIN [Suspect]
     Indication: DRUG USE FOR UNKNOWN INDICATION
     Dates: start: 20030101, end: 20030201
  5. EFFEXOR [Concomitant]

REACTIONS (12)
  - ALOPECIA [None]
  - AMNESIA [None]
  - DROOLING [None]
  - EYELID DISORDER [None]
  - HAIR COLOUR CHANGES [None]
  - INTESTINAL FUNCTIONAL DISORDER [None]
  - MUSCLE ATROPHY [None]
  - OVERDOSE [None]
  - POSTURE ABNORMAL [None]
  - SUICIDE ATTEMPT [None]
  - TARDIVE DYSKINESIA [None]
  - VISUAL ACUITY REDUCED [None]
